FAERS Safety Report 18156452 (Version 2)
Quarter: 2020Q3

REPORT INFORMATION
  Report Type: Spontaneous
  Country: US (occurrence: US)
  Receive Date: 20200817
  Receipt Date: 20200824
  Transmission Date: 20201103
  Serious: Yes (Other)
  Sender: FDA-Public Use
  Company Number: US-PFIZER INC-2020313785

PATIENT
  Age: 56 Year
  Sex: Female

DRUGS (1)
  1. IBRANCE [Suspect]
     Active Substance: PALBOCICLIB
     Indication: BREAST CANCER METASTATIC
     Dosage: 125 MG, CYCLIC (125MG/ 21 DAYS AND 7 DAYS OFF)/(21 DAYS ON AND 7 DAYS OFF)
     Dates: start: 201601

REACTIONS (6)
  - Fatigue [Unknown]
  - Pain [Recovered/Resolved]
  - White blood cell count decreased [Unknown]
  - Clostridium difficile colitis [Unknown]
  - Infection [Unknown]
  - Immune system disorder [Unknown]

NARRATIVE: CASE EVENT DATE: 202004
